FAERS Safety Report 11401319 (Version 1)
Quarter: 2015Q3

REPORT INFORMATION
  Report Type: Spontaneous
  Country: US (occurrence: US)
  Receive Date: 20150820
  Receipt Date: 20150820
  Transmission Date: 20151125
  Serious: No
  Sender: FDA-Public Use
  Company Number: CHPA2015US009860

PATIENT
  Age: 67 Year
  Sex: Female

DRUGS (3)
  1. VOLTAREN [Suspect]
     Active Substance: DICLOFENAC SODIUM
     Indication: OSTEOARTHRITIS
     Dosage: JUST A DROP/HALF A TSP, BID
     Route: 061
     Dates: start: 2014
  2. ESTAZOLAM. [Concomitant]
     Active Substance: ESTAZOLAM
     Indication: SLEEP DISORDER
     Dosage: 2 MG, UNK
     Route: 065
  3. VOLTAREN [Suspect]
     Active Substance: DICLOFENAC SODIUM
     Indication: FIBROMYALGIA

REACTIONS (9)
  - Pain [Not Recovered/Not Resolved]
  - Drug administered at inappropriate site [Unknown]
  - Musculoskeletal discomfort [Not Recovered/Not Resolved]
  - Product use issue [Unknown]
  - Inappropriate schedule of drug administration [Unknown]
  - Abdominal pain upper [Recovered/Resolved]
  - Wrong technique in product usage process [Unknown]
  - Limb discomfort [Not Recovered/Not Resolved]
  - Abdominal discomfort [Recovered/Resolved]

NARRATIVE: CASE EVENT DATE: 2014
